FAERS Safety Report 23107886 (Version 5)
Quarter: 2025Q2

REPORT INFORMATION
  Report Type: Report from Study
  Country: CA (occurrence: CA)
  Receive Date: 20231026
  Receipt Date: 20250429
  Transmission Date: 20250717
  Serious: Yes (Other)
  Sender: ROCHE
  Company Number: CA-ROCHE-2630882

PATIENT
  Sex: Female

DRUGS (8)
  1. OCREVUS [Suspect]
     Active Substance: OCRELIZUMAB
     Indication: Relapsing-remitting multiple sclerosis
     Dosage: 300 MG ON DAY 0, DAY 14 THEN 600 MG EVERY 6 MONTH
     Route: 042
     Dates: start: 20190624
  2. CLONAZEPAM [Concomitant]
     Active Substance: CLONAZEPAM
  3. LITHIUM CARBONATE [Concomitant]
     Active Substance: LITHIUM CARBONATE
  4. PROZAC [Concomitant]
     Active Substance: FLUOXETINE HYDROCHLORIDE
  5. SYNTHROID [Concomitant]
     Active Substance: LEVOTHYROXINE SODIUM
  6. GABAPENTIN [Concomitant]
     Active Substance: GABAPENTIN
  7. FIORINAL [Concomitant]
     Active Substance: ASPIRIN\BUTALBITAL\CAFFEINE
  8. DIAZEPAM [Concomitant]
     Active Substance: DIAZEPAM

REACTIONS (17)
  - Optic neuritis [Recovered/Resolved]
  - Eye pain [Recovered/Resolved]
  - Gait disturbance [Not Recovered/Not Resolved]
  - Memory impairment [Not Recovered/Not Resolved]
  - Asthenia [Not Recovered/Not Resolved]
  - Carpal tunnel syndrome [Unknown]
  - Neuralgia [Unknown]
  - Syncope [Not Recovered/Not Resolved]
  - Contusion [Unknown]
  - Fall [Unknown]
  - Photophobia [Unknown]
  - Head injury [Unknown]
  - Gait disturbance [Unknown]
  - Concussion [Unknown]
  - Constipation [Not Recovered/Not Resolved]
  - Bipolar disorder [Unknown]
  - Off label use [Unknown]
